FAERS Safety Report 9202124 (Version 1)
Quarter: 2013Q2

REPORT INFORMATION
  Report Type: Spontaneous
  Country: FR (occurrence: FR)
  Receive Date: 20130401
  Receipt Date: 20130401
  Transmission Date: 20140414
  Serious: Yes (Hospitalization)
  Sender: FDA-Public Use
  Company Number: FR-BRISTOL-MYERS SQUIBB COMPANY-18703819

PATIENT
  Age: 59 Year
  Sex: Male

DRUGS (15)
  1. BICNU [Suspect]
     Route: 042
     Dates: start: 20130123
  2. ALKERAN [Suspect]
     Dates: start: 20130128
  3. ETOPOSIDE [Suspect]
     Dosage: ETOPOSIDE MYLAN
     Route: 042
     Dates: start: 20130124, end: 20130127
  4. ARACYTINE [Suspect]
     Indication: BONE GRAFT
     Route: 042
     Dates: start: 20130124, end: 20130127
  5. ACUPAN [Concomitant]
  6. ZOPHREN [Concomitant]
  7. DELURSAN [Concomitant]
  8. HEPARIN SODIUM [Concomitant]
  9. VITAMIN K1 [Concomitant]
  10. TIORFAN [Concomitant]
  11. PRIMPERAN [Concomitant]
  12. SPASFON [Concomitant]
  13. ARESTAL [Concomitant]
  14. VITAMIN B1 [Concomitant]
  15. VITAMIN B6 [Concomitant]

REACTIONS (4)
  - Bone marrow failure [Recovering/Resolving]
  - Sepsis [Recovered/Resolved]
  - Diarrhoea [Recovered/Resolved]
  - Colitis [Unknown]
